FAERS Safety Report 8780062 (Version 1)
Quarter: 2012Q4

REPORT INFORMATION
  Report Type: Spontaneous
  Country: US (occurrence: None)
  Receive Date: 20120831
  Receipt Date: 20120831
  Transmission Date: 20130627
  Serious: Yes (Disabling, Other)
  Sender: FDA-Public Use
  Company Number: None

PATIENT
  Age: 52 Year
  Sex: Female
  Weight: 81.65 kg

DRUGS (2)
  1. BUMETANIDE [Suspect]
     Dosage: 1 to 2 Tablets Daily
     Dates: start: 20120530
  2. BUMETANIDE [Suspect]
     Dosage: 1 to 2 Tablets Daily
     Dates: start: 20120530

REACTIONS (9)
  - Retching [None]
  - Cough [None]
  - Rash [None]
  - Rash [None]
  - Swelling [None]
  - Pain [None]
  - Fluid retention [None]
  - Skin discolouration [None]
  - Excoriation [None]
